FAERS Safety Report 4639708-1 (Version None)
Quarter: 2005Q2

REPORT INFORMATION
  Report Type: 
  Country: None (occurrence: None)
  Receive Date: 20050418
  Receipt Date: 20050405
  Transmission Date: 20051028
  Serious: Yes (Other)
  Sender: FDA-Public Use
  Company Number: 2005054839

PATIENT
  Sex: Female
  Weight: 14 kg

DRUGS (7)
  1. LINEZOLID                 (LINEZOLID) [Suspect]
     Indication: ATYPICAL MYCOBACTERIAL INFECTION
  2. RIFABUTIN                (RIFABUTIN) [Concomitant]
  3. CLARITHROMYCIN [Concomitant]
  4. ETHAMBUTOL HCL [Concomitant]
  5. MOXIFLOXACIN HCL [Concomitant]
  6. PEGINTERFERON ALFA-2B              (PEGINTERFERFON ALFA-2B) [Concomitant]
  7. AMIKACIN SULFATE [Concomitant]

REACTIONS (3)
  - METABOLIC ACIDOSIS [None]
  - OVERDOSE [None]
  - THROMBOCYTOPENIA [None]
